FAERS Safety Report 25089117 (Version 2)
Quarter: 2025Q2

REPORT INFORMATION
  Report Type: Spontaneous
  Country: US (occurrence: US)
  Receive Date: 20250318
  Receipt Date: 20250522
  Transmission Date: 20250716
  Serious: Yes (Other)
  Sender: INTRA-CELLULAR THERAPIES
  Company Number: US-INTRA-CELLULAR THERAPIES, INC.-2025ICT00338

PATIENT

DRUGS (4)
  1. LITHIUM [Suspect]
     Active Substance: LITHIUM
  2. ADDERALL [Suspect]
     Active Substance: AMPHETAMINE ASPARTATE\AMPHETAMINE SULFATE\DEXTROAMPHETAMINE SACCHARATE\DEXTROAMPHETAMINE SULFATE
  3. BUPROPION [Suspect]
     Active Substance: BUPROPION
  4. TRINTELLIX [Suspect]
     Active Substance: VORTIOXETINE HYDROBROMIDE

REACTIONS (4)
  - Drug interaction [Unknown]
  - Serotonin syndrome [Unknown]
  - Gastrointestinal disorder [Unknown]
  - Sleep disorder [Unknown]
